FAERS Safety Report 8842968 (Version 5)
Quarter: 2013Q3

REPORT INFORMATION
  Report Type: Report from Study
  Country: US (occurrence: US)
  Receive Date: 20121016
  Receipt Date: 20130808
  Transmission Date: 20140515
  Serious: Yes (Other)
  Sender: FDA-Public Use
  Company Number: US-VERTEX PHARMACEUTICAL INC.-2012-022825

PATIENT
  Age: 52 Year
  Sex: Female

DRUGS (4)
  1. VX-950 (TELAPREVIR) [Suspect]
     Indication: HEPATITIS C
     Dosage: UNK
     Route: 048
     Dates: start: 20120828, end: 20121120
  2. RIBAVIRIN [Suspect]
     Indication: HEPATITIS C
     Dosage: UNK
     Route: 048
     Dates: start: 20120828
  3. RIBAVIRIN [Suspect]
     Dosage: 200 MG, QD
     Dates: end: 20130729
  4. PEGASYS [Suspect]
     Indication: HEPATITIS C
     Dosage: UNK
     Route: 058
     Dates: start: 20120828, end: 20130723

REACTIONS (18)
  - Anaemia [Not Recovered/Not Resolved]
  - Dyspnoea [Not Recovered/Not Resolved]
  - Dizziness [Not Recovered/Not Resolved]
  - Headache [Not Recovered/Not Resolved]
  - Menopause [Unknown]
  - Pyrexia [Not Recovered/Not Resolved]
  - Anxiety [Not Recovered/Not Resolved]
  - Mood altered [Not Recovered/Not Resolved]
  - Irritability [Not Recovered/Not Resolved]
  - Serum ferritin increased [Not Recovered/Not Resolved]
  - Dacryostenosis acquired [Unknown]
  - Dry eye [Not Recovered/Not Resolved]
  - Alopecia [Not Recovered/Not Resolved]
  - Dyspepsia [Not Recovered/Not Resolved]
  - Neutropenia [Not Recovered/Not Resolved]
  - Fatigue [Not Recovered/Not Resolved]
  - Asthenia [Unknown]
  - Dysgeusia [Not Recovered/Not Resolved]
